FAERS Safety Report 6190611-8 (Version None)
Quarter: 2009Q2

REPORT INFORMATION
  Report Type: 
  Country: None (occurrence: None)
  Receive Date: 20090514
  Receipt Date: 20090318
  Transmission Date: 20091009
  Serious: No
  Sender: FDA-Public Use
  Company Number: US-BRISTOL-MYERS SQUIBB COMPANY-14549596

PATIENT

DRUGS (1)
  1. IXEMPRA KIT [Suspect]
     Dosage: GIVEN VIA PORT
     Dates: start: 20090310

REACTIONS (2)
  - INJECTION SITE EXTRAVASATION [None]
  - INJECTION SITE SWELLING [None]
